FAERS Safety Report 24764005 (Version 1)
Quarter: 2024Q4

REPORT INFORMATION
  Report Type: Spontaneous
  Country: US (occurrence: US)
  Receive Date: 20241223
  Receipt Date: 20241223
  Transmission Date: 20250115
  Serious: Yes (Other)
  Sender: AMGEN
  Company Number: US-AMGEN-USASP2024247728

PATIENT

DRUGS (3)
  1. PROCRIT [Suspect]
     Active Substance: ERYTHROPOIETIN
     Indication: Product used for unknown indication
     Dosage: UNK
     Route: 065
  2. TREMFYA [Suspect]
     Active Substance: GUSELKUMAB
     Indication: Psoriasis
     Dosage: 100 MILLIGRAM PER MILLILITRE, 0 WEEKS, 2ND DOSE AT 4 WEEKS, OR EVERY INFORMATION HERE 8 WEEKS
     Route: 065
  3. REBLOZYL [Concomitant]
     Active Substance: LUSPATERCEPT-AAMT
     Dosage: UNK
     Route: 065

REACTIONS (3)
  - Myelodysplastic syndrome [Unknown]
  - Rhinorrhoea [Recovering/Resolving]
  - Psoriasis [Recovering/Resolving]
